FAERS Safety Report 8394973-2 (Version None)
Quarter: 2012Q2

REPORT INFORMATION
  Report Type: 
  Country: None (occurrence: None)
  Receive Date: 20120530
  Receipt Date: 20120217
  Transmission Date: 20120825
  Serious: No
  Sender: FDA-Public Use
  Company Number: US-GLAXOSMITHKLINE-A0967030A

PATIENT
  Age: 68 Year
  Sex: Male

DRUGS (5)
  1. FLOLAN [Suspect]
     Indication: PULMONARY ARTERIAL HYPERTENSION
     Route: 042
     Dates: start: 20120106
  2. ADCIRCA [Concomitant]
     Dosage: 40MG PER DAY
  3. ASPIRIN [Concomitant]
     Dosage: 81MG PER DAY
  4. OXYGEN [Concomitant]
  5. TRACLEER [Concomitant]
     Dosage: 125MG TWICE PER DAY

REACTIONS (1)
  - EPISTAXIS [None]
